FAERS Safety Report 6127317-7 (Version None)
Quarter: 2009Q1

REPORT INFORMATION
  Report Type: 
  Country: None (occurrence: None)
  Receive Date: 20090319
  Receipt Date: 20090305
  Transmission Date: 20090719
  Serious: Yes (Other)
  Sender: FDA-Public Use
  Company Number: 2009S1004122

PATIENT
  Age: 51 Year
  Sex: Male
  Weight: 87 kg

DRUGS (8)
  1. ONDANSETRON HCL [Suspect]
     Indication: PROPHYLAXIS OF NAUSEA AND VOMITING
     Dosage: 4 MG; ;INTRAVENOUS
     Route: 042
  2. ROCURONIUM BROMIDE [Concomitant]
  3. ISOFLURANE [Concomitant]
  4. PROPOFOL [Concomitant]
  5. FENTANYL-25 [Concomitant]
  6. MIDAZOLAM HCL [Concomitant]
  7. CEFAZOLIN AND DEXTROSE [Concomitant]
  8. GLYCOPYRROLATE [Concomitant]

REACTIONS (12)
  - ATRIAL FIBRILLATION [None]
  - BLOOD PRESSURE SYSTOLIC DECREASED [None]
  - CHEST PAIN [None]
  - CORONARY ARTERY STENOSIS [None]
  - ELECTROCARDIOGRAM ST SEGMENT ELEVATION [None]
  - ELECTROCARDIOGRAM ST-T SEGMENT ABNORMAL [None]
  - HYPERHIDROSIS [None]
  - LEFT ATRIAL DILATATION [None]
  - LEFT VENTRICULAR HYPERTROPHY [None]
  - NAUSEA [None]
  - VASOSPASM [None]
  - VOMITING [None]
